FAERS Safety Report 24186561 (Version 1)
Quarter: 2024Q3

REPORT INFORMATION
  Report Type: Spontaneous
  Country: US (occurrence: US)
  Receive Date: 20240808
  Receipt Date: 20240808
  Transmission Date: 20241016
  Serious: No
  Sender: LEO PHARM
  Company Number: US-LEO Pharma-372597

PATIENT
  Age: 45 Year
  Sex: Male

DRUGS (2)
  1. ADBRY [Suspect]
     Active Substance: TRALOKINUMAB-LDRM
     Indication: Dermatitis atopic
     Dosage: 4 INJECTIONS FOR THE LOADING DOSE THEN AT 2 INJECTIONS EVERY TWO WEEKS
     Dates: start: 202208
  2. ADBRY [Suspect]
     Active Substance: TRALOKINUMAB-LDRM
     Indication: Dermatitis atopic
     Dosage: 4 INJECTIONS FOR THE LOADING DOSE THEN AT 2 INJECTIONS EVERY TWO WEEKS

REACTIONS (1)
  - Eye irritation [Unknown]
